FAERS Safety Report 6110173-0 (Version None)
Quarter: 2009Q1

REPORT INFORMATION
  Report Type: 
  Country: None (occurrence: None)
  Receive Date: 20090309
  Receipt Date: 20090309
  Transmission Date: 20090719
  Serious: Yes (Other)
  Sender: FDA-Public Use
  Company Number: None

PATIENT
  Age: 55 Year
  Sex: Female
  Weight: 61.6892 kg

DRUGS (1)
  1. LEVAQUIN [Suspect]
     Indication: SKIN LACERATION
     Dosage: I THREW IT AWAY
     Dates: start: 20081230, end: 20090117

REACTIONS (4)
  - ARTHRALGIA [None]
  - PAIN IN EXTREMITY [None]
  - SKIN MASS [None]
  - THYROID DISORDER [None]
